FAERS Safety Report 4817923-1 (Version None)
Quarter: 2005Q3

REPORT INFORMATION
  Report Type: 
  Country: None (occurrence: None)
  Receive Date: 20050929
  Receipt Date: 20050708
  Transmission Date: 20060218
  Serious: No
  Sender: FDA-Public Use
  Company Number: 05P-163-0305154-00

PATIENT
  Age: 77 Year
  Sex: Female
  Weight: 56.6996 kg

DRUGS (12)
  1. HUMIRA [Suspect]
     Indication: RHEUMATOID ARTHRITIS
     Dosage: 40 MG, 1 IN 2 WK, SUBCUTANEOUS
     Route: 058
     Dates: start: 20040101
  2. PHENYTOIN SODIUM [Concomitant]
  3. RANITIDINE [Concomitant]
  4. PREDNISONE [Concomitant]
  5. RISEDRONATE SODIUM [Concomitant]
  6. LEFLUNOMIDE [Concomitant]
  7. ASPIRIN [Concomitant]
  8. CODEINE [Concomitant]
  9. VITAMIN B COMPLEX CAP [Concomitant]
  10. TOCOPHEROL CONCENTRATE CAP [Concomitant]
  11. ASCORBIC ACID [Concomitant]
  12. CALCIUM PLUS D [Concomitant]

REACTIONS (5)
  - ASTHENIA [None]
  - BREAST PAIN [None]
  - CHEST DISCOMFORT [None]
  - COUGH [None]
  - OEDEMA PERIPHERAL [None]
